FAERS Safety Report 8223424-3 (Version None)
Quarter: 2012Q1

REPORT INFORMATION
  Report Type: 
  Country: None (occurrence: None)
  Receive Date: 20120316
  Receipt Date: 20120302
  Transmission Date: 20120608
  Serious: Yes (Hospitalization, Other)
  Sender: FDA-Public Use
  Company Number: CIP11003083

PATIENT
  Age: 73 Year
  Sex: Female

DRUGS (1)
  1. RISEDRONATE SODIUM [Suspect]
     Indication: OSTEOPOROSIS
     Dosage: 17.5MG ONCE WEEKLY, ORAL
     Route: 048
     Dates: start: 20060101, end: 20090930

REACTIONS (8)
  - SCIATICA [None]
  - PAIN [None]
  - PAIN IN EXTREMITY [None]
  - PSEUDARTHROSIS [None]
  - FEMUR FRACTURE [None]
  - DEVICE BREAKAGE [None]
  - FRACTURE DELAYED UNION [None]
  - BONE DISORDER [None]
